FAERS Safety Report 17327682 (Version 3)
Quarter: 2020Q1

REPORT INFORMATION
  Report Type: Spontaneous
  Country: US (occurrence: US)
  Receive Date: 20200127
  Receipt Date: 20200313
  Transmission Date: 20200409
  Serious: Yes (Death)
  Sender: FDA-Public Use
  Company Number: US-JNJFOC-20200129226

PATIENT
  Age: 74 Year
  Sex: Male
  Weight: 98.97 kg

DRUGS (9)
  1. LORAZEPAM. [Suspect]
     Active Substance: LORAZEPAM
     Indication: DEMENTIA ALZHEIMER^S TYPE
     Route: 065
  2. ARICEPT [Suspect]
     Active Substance: DONEPEZIL HYDROCHLORIDE
     Indication: DEMENTIA ALZHEIMER^S TYPE
     Route: 048
     Dates: start: 2015, end: 20200108
  3. SEROQUEL [Suspect]
     Active Substance: QUETIAPINE FUMARATE
     Indication: AGITATION
     Dosage: HALF A TABLET TO A WHOLE TABLET TO TID ON 06-JAN-2020
     Route: 048
     Dates: start: 2015, end: 20200108
  4. MIRTAZAPINE. [Suspect]
     Active Substance: MIRTAZAPINE
     Indication: DEMENTIA ALZHEIMER^S TYPE
     Route: 065
  5. REQUIP [Concomitant]
     Active Substance: ROPINIROLE HYDROCHLORIDE
     Indication: RESTLESS LEGS SYNDROME
     Dosage: FROM 1 DAILY TO 3 AT BEDTIME
     Route: 048
     Dates: start: 2015, end: 20200108
  6. HALOPERIDOL. [Suspect]
     Active Substance: HALOPERIDOL
     Indication: DEMENTIA ALZHEIMER^S TYPE
     Route: 048
  7. HALDOL [Suspect]
     Active Substance: HALOPERIDOL
     Indication: AGITATION
     Route: 065
     Dates: start: 20200106, end: 20200112
  8. HALDOL [Suspect]
     Active Substance: HALOPERIDOL
     Indication: DEMENTIA ALZHEIMER^S TYPE
  9. GEODON [Suspect]
     Active Substance: ZIPRASIDONE HYDROCHLORIDE\ZIPRASIDONE MESYLATE
     Indication: DEMENTIA ALZHEIMER^S TYPE
     Route: 065
     Dates: end: 20200107

REACTIONS (5)
  - Social avoidant behaviour [Unknown]
  - Lethargy [Not Recovered/Not Resolved]
  - Death [Fatal]
  - Glassy eyes [Not Recovered/Not Resolved]
  - Drooling [Not Recovered/Not Resolved]

NARRATIVE: CASE EVENT DATE: 20200106
